FAERS Safety Report 5733559-2 (Version None)
Quarter: 2008Q2

REPORT INFORMATION
  Report Type: 
  Country: None (occurrence: None)
  Receive Date: 20080509
  Receipt Date: 20080430
  Transmission Date: 20081010
  Serious: Yes (Other)
  Sender: FDA-Public Use
  Company Number: BR-JNJFOC-20080500064

PATIENT
  Age: 28 Year
  Sex: Male
  Weight: 74 kg

DRUGS (1)
  1. SPORANOX [Suspect]
     Indication: FUNGAL INFECTION
     Route: 048

REACTIONS (3)
  - DIZZINESS [None]
  - HYPERAESTHESIA [None]
  - HYPERTENSION [None]
